FAERS Safety Report 4518034-5 (Version None)
Quarter: 2004Q4

REPORT INFORMATION
  Report Type: 
  Country: None (occurrence: None)
  Receive Date: 20041203
  Receipt Date: 20041112
  Transmission Date: 20050328
  Serious: Yes (Hospitalization)
  Sender: FDA-Public Use
  Company Number: FR-BRISTOL-MYERS SQUIBB COMPANY-12763728

PATIENT
  Age: 27 Year
  Sex: Male

DRUGS (1)
  1. FLUPHENAZINE [Suspect]
     Indication: SCHIZOTYPAL PERSONALITY DISORDER
     Route: 030
     Dates: start: 20041013, end: 20041013

REACTIONS (1)
  - TOXIC SKIN ERUPTION [None]
